FAERS Safety Report 19186954 (Version 2)
Quarter: 2021Q2

REPORT INFORMATION
  Report Type: Spontaneous
  Country: US (occurrence: US)
  Receive Date: 20210428
  Receipt Date: 20210608
  Transmission Date: 20210717
  Serious: Yes (Life-Threatening, Other)
  Sender: FDA-Public Use
  Company Number: US-SUN PHARMACEUTICAL INDUSTRIES LTD-2021R1-292615

PATIENT
  Age: 62 Year
  Sex: Female

DRUGS (2)
  1. NORADRENALINE [Suspect]
     Active Substance: NOREPINEPHRINE
     Indication: REVERSIBLE CEREBRAL VASOCONSTRICTION SYNDROME
     Route: 065
  2. NORADRENALINE [Suspect]
     Active Substance: NOREPINEPHRINE
     Indication: POSTERIOR REVERSIBLE ENCEPHALOPATHY SYNDROME

REACTIONS (1)
  - Bradycardia [Unknown]
